FAERS Safety Report 17070592 (Version 2)
Quarter: 2020Q3

REPORT INFORMATION
  Report Type: Spontaneous
  Country: HU (occurrence: HU)
  Receive Date: 20191125
  Receipt Date: 20191213
  Transmission Date: 20201104
  Serious: No
  Sender: FDA-Public Use
  Company Number: HU-PFIZER INC-2019504206

PATIENT
  Age: 33 Year
  Sex: Female

DRUGS (5)
  1. CERITINIB [Suspect]
     Active Substance: CERITINIB
     Indication: METASTASES TO CENTRAL NERVOUS SYSTEM
     Dosage: UNK
  2. ALECTINIB. [Suspect]
     Active Substance: ALECTINIB
     Indication: METASTASES TO CENTRAL NERVOUS SYSTEM
  3. CRIZOTINIB [Suspect]
     Active Substance: CRIZOTINIB
     Indication: LUNG ADENOCARCINOMA
     Dosage: UNK
     Dates: start: 201602, end: 201704
  4. CERITINIB [Suspect]
     Active Substance: CERITINIB
     Indication: LUNG ADENOCARCINOMA
  5. ALECTINIB. [Suspect]
     Active Substance: ALECTINIB
     Indication: LUNG ADENOCARCINOMA
     Dosage: UNK
     Dates: start: 201707, end: 201808

REACTIONS (3)
  - Neoplasm progression [Recovering/Resolving]
  - Fatigue [Unknown]
  - Asthenia [Unknown]

NARRATIVE: CASE EVENT DATE: 201703
